FAERS Safety Report 5521780-8 (Version None)
Quarter: 2007Q4

REPORT INFORMATION
  Report Type: 
  Country: None (occurrence: None)
  Receive Date: 20071120
  Receipt Date: 20071109
  Transmission Date: 20080405
  Serious: Yes (Death, Other)
  Sender: FDA-Public Use
  Company Number: US-AVENTIS-200718034US

PATIENT
  Age: 77 Year
  Sex: Male

DRUGS (1)
  1. LOVENOX [Suspect]
     Indication: PROPHYLAXIS

REACTIONS (2)
  - DEATH [None]
  - HAEMORRHAGE [None]
